FAERS Safety Report 4318953-9 (Version None)
Quarter: 2004Q1

REPORT INFORMATION
  Report Type: 
  Country: None (occurrence: None)
  Receive Date: 20040316
  Receipt Date: 20040305
  Transmission Date: 20041129
  Serious: Yes (Disabling)
  Sender: FDA-Public Use
  Company Number: 2003-105990-NL

PATIENT
  Age: 83 Year
  Sex: Female

DRUGS (7)
  1. MIRTAZAPINE [Suspect]
     Indication: ANXIETY DISORDER
     Dosage: 15 MG
     Route: 048
     Dates: start: 20020101
  2. TENORETIC [Concomitant]
  3. NITRAZEPAM [Concomitant]
  4. PIRACETAM [Concomitant]
  5. CETIRIZINE HCL [Concomitant]
  6. SPASMO-CIBALGIN [Concomitant]
  7. CELECOXIB [Concomitant]

REACTIONS (4)
  - CHRONIC MYELOMONOCYTIC LEUKAEMIA [None]
  - MYELODYSPLASTIC SYNDROME [None]
  - PRURITUS GENERALISED [None]
  - THROMBOCYTOPENIA [None]
